FAERS Safety Report 10782651 (Version 1)
Quarter: 2015Q1

REPORT INFORMATION
  Report Type: Spontaneous
  Country: US (occurrence: None)
  Receive Date: 20150209
  Receipt Date: 20150209
  Transmission Date: 20150721
  Serious: Yes (Hospitalization)
  Sender: FDA-Public Use
  Company Number: None

PATIENT
  Age: 58 Year
  Sex: Male
  Weight: 106.7 kg

DRUGS (2)
  1. SELINEXOR [Suspect]
     Active Substance: SELINEXOR
     Indication: OESOPHAGEAL CARCINOMA
     Dosage: 40 MG/M2, D1, D3, D8, D10
     Dates: start: 20150202, end: 20150202
  2. IRINOTECAN [Suspect]
     Active Substance: IRINOTECAN
     Indication: OESOPHAGEAL CARCINOMA
     Dosage: 125 MG/M2, D1 + D8 Q21DAY, IV
     Route: 042
     Dates: start: 20150202, end: 20150202

REACTIONS (3)
  - Vomiting [None]
  - Retching [None]
  - Nausea [None]

NARRATIVE: CASE EVENT DATE: 20150205
